FAERS Safety Report 18049232 (Version 1)
Quarter: 2020Q3

REPORT INFORMATION
  Report Type: Report from Study
  Country: BE (occurrence: BE)
  Receive Date: 20200721
  Receipt Date: 20200721
  Transmission Date: 20201103
  Serious: Yes (Hospitalization)
  Sender: FDA-Public Use
  Company Number: BE-PFIZER INC-2020277022

PATIENT
  Age: 61 Year
  Sex: Male
  Weight: 102 kg

DRUGS (10)
  1. LEUCOVORIN [FOLINIC ACID] [Suspect]
     Active Substance: LEUCOVORIN
     Indication: COLORECTAL CANCER METASTATIC
     Dosage: 443 MG, EVERY 2 WEEKS
     Route: 042
     Dates: start: 20180321, end: 20180417
  2. IRINOTECAN HCL [Suspect]
     Active Substance: IRINOTECAN HYDROCHLORIDE
     Indication: COLORECTAL CANCER METASTATIC
     Dosage: 399 MG, EVERY 2 WEEKS
     Route: 042
     Dates: start: 20180321, end: 20180417
  3. EMCONCOR [Concomitant]
     Active Substance: BISOPROLOL FUMARATE
     Dosage: UNK
     Dates: start: 20171121
  4. LERCANIDIPIN SANDOZ [Concomitant]
     Active Substance: LERCANIDIPINE HYDROCHLORIDE
     Dosage: UNK
     Dates: start: 20171121
  5. LEUCOVORIN [FOLINIC ACID] [Suspect]
     Active Substance: LEUCOVORIN
     Dosage: 443 MG, EVERY 2 WEEKS
     Route: 042
     Dates: start: 20180508
  6. IRINOTECAN HCL [Suspect]
     Active Substance: IRINOTECAN HYDROCHLORIDE
     Dosage: 399 MG, EVERY 2 WEEKS
     Route: 042
     Dates: start: 20180508
  7. 5?FLUOROURACIL [FLUOROURACIL] [Suspect]
     Active Substance: FLUOROURACIL
     Indication: COLORECTAL CANCER METASTATIC
     Dosage: 885.6 MG INTRAVENOUS (IV) BOLUS AND 5313.4 MG IV INFUSION EVERY TWO WEEKS
     Route: 042
     Dates: start: 20180321, end: 20180417
  8. 5?FLUOROURACIL [FLUOROURACIL] [Suspect]
     Active Substance: FLUOROURACIL
     Dosage: 885.6 MG INTRAVENOUS (IV) BOLUS AND 5313.4 MG IV INFUSION EVERY TWO WEEKS
     Route: 042
     Dates: start: 20180508
  9. MICARDIS PLUS [Concomitant]
     Active Substance: HYDROCHLOROTHIAZIDE\TELMISARTAN
     Dosage: UNK
     Dates: start: 20171127
  10. MOXON [Concomitant]
     Active Substance: MOXONIDINE
     Dosage: UNK
     Dates: start: 20171129

REACTIONS (1)
  - Pyelonephritis [Recovered/Resolved]

NARRATIVE: CASE EVENT DATE: 20180503
